FAERS Safety Report 8599280-0 (Version None)
Quarter: 2012Q3

REPORT INFORMATION
  Report Type: 
  Country: None (occurrence: None)
  Receive Date: 20120816
  Receipt Date: 20120703
  Transmission Date: 20120928
  Serious: No
  Sender: FDA-Public Use
  Company Number: US-AMGEN-USASP2012040990

PATIENT
  Age: 4 Year
  Sex: Male

DRUGS (1)
  1. NEUPOGEN [Suspect]
     Indication: NEUTROPENIA
     Dosage: 100 MUG, QD
     Dates: start: 20120301

REACTIONS (3)
  - INJECTION SITE PAIN [None]
  - MYALGIA [None]
  - PAIN [None]
